FAERS Safety Report 19705055 (Version 1)
Quarter: 2021Q3

REPORT INFORMATION
  Report Type: Spontaneous
  Country: US (occurrence: US)
  Receive Date: 20210816
  Receipt Date: 20210816
  Transmission Date: 20211014
  Serious: Yes (Other)
  Sender: FDA-Public Use
  Company Number: None

PATIENT
  Age: 41 Year
  Sex: Male
  Weight: 102.15 kg

DRUGS (4)
  1. PARAXOTINE [Concomitant]
  2. VITAMIN C [Concomitant]
     Active Substance: ASCORBIC ACID
  3. ATORVASTATIN [Suspect]
     Active Substance: ATORVASTATIN
     Route: 048
  4. OMAZPEROLE [Concomitant]

REACTIONS (4)
  - Muscle rupture [None]
  - Nerve injury [None]
  - Tendon rupture [None]
  - Ligament injury [None]

NARRATIVE: CASE EVENT DATE: 20200809
